FAERS Safety Report 10007961 (Version 3)
Quarter: 2014Q3

REPORT INFORMATION
  Report Type: Report from Study
  Country: CN (occurrence: CN)
  Receive Date: 20140313
  Receipt Date: 20140713
  Transmission Date: 20150326
  Serious: Yes (Death)
  Sender: FDA-Public Use
  Company Number: PHHY2014CN030749

PATIENT
  Age: 45 Year
  Sex: Male

DRUGS (1)
  1. GLIVEC [Suspect]
     Active Substance: IMATINIB MESYLATE
     Indication: GASTROINTESTINAL STROMAL TUMOUR
     Dosage: 400 MG, QD
     Route: 048
     Dates: start: 20100614, end: 20120515

REACTIONS (2)
  - Muscular weakness [Unknown]
  - Malnutrition [Fatal]

NARRATIVE: CASE EVENT DATE: 20121017
